FAERS Safety Report 24544551 (Version 2)
Quarter: 2024Q4

REPORT INFORMATION
  Report Type: Report from Study
  Country: DE (occurrence: DE)
  Receive Date: 20241024
  Receipt Date: 20241122
  Transmission Date: 20250115
  Serious: Yes (Hospitalization, Disabling, Other)
  Sender: ABBVIE
  Company Number: DE-ABBVIE-5972704

PATIENT
  Age: 38 Year
  Sex: Male
  Weight: 64 kg

DRUGS (8)
  1. RISANKIZUMAB [Suspect]
     Active Substance: RISANKIZUMAB
     Indication: Crohn^s disease
     Route: 058
     Dates: start: 20240503
  2. RISANKIZUMAB [Suspect]
     Active Substance: RISANKIZUMAB
     Indication: Crohn^s disease
     Route: 042
     Dates: start: 20240207, end: 20240415
  3. CHOLESTYRAMINE [Concomitant]
     Active Substance: CHOLESTYRAMINE
     Indication: Bile acid malabsorption
     Dosage: 2 APPLICATION
     Route: 048
     Dates: start: 20120207
  4. CHOLECALCIFEROL [Concomitant]
     Active Substance: CHOLECALCIFEROL
     Indication: Vitamin D deficiency
     Route: 048
     Dates: start: 20211215
  5. FOLATE SODIUM [Concomitant]
     Active Substance: FOLATE SODIUM
     Indication: Folate deficiency
     Route: 048
     Dates: start: 20240209
  6. LOPERAMIDE [Concomitant]
     Active Substance: LOPERAMIDE
     Indication: Crohn^s disease
     Dosage: TIME INTERVAL: AS NECESSARY
     Route: 048
     Dates: start: 20120302
  7. NOVALGIN [Concomitant]
     Indication: Pain
     Dosage: TIME INTERVAL: AS NECESSARY
     Route: 048
     Dates: start: 20190726
  8. VITAMINE B 12 [Concomitant]
     Indication: Vitamin B12 deficiency
     Dosage: TIME INTERVAL: AS NECESSARY
     Route: 058
     Dates: start: 20100830

REACTIONS (2)
  - Enteritis [Not Recovered/Not Resolved]
  - Surgery [Not Recovered/Not Resolved]

NARRATIVE: CASE EVENT DATE: 20240806
